FAERS Safety Report 6594087-8 (Version None)
Quarter: 2010Q1

REPORT INFORMATION
  Report Type: 
  Country: None (occurrence: None)
  Receive Date: 20100222
  Receipt Date: 20100210
  Transmission Date: 20100710
  Serious: Yes (Other)
  Sender: FDA-Public Use
  Company Number: JP-ROCHE-653272

PATIENT
  Sex: Female

DRUGS (5)
  1. PEG-INTERFERON ALFA 2A (RO 25-8310) [Suspect]
     Route: 058
     Dates: start: 20090605, end: 20090703
  2. PEG-INTERFERON ALFA 2A (RO 25-8310) [Suspect]
     Route: 058
     Dates: start: 20090710, end: 20090717
  3. PEG-INTERFERON ALFA 2A (RO 25-8310) [Suspect]
     Route: 058
     Dates: start: 20090724, end: 20090821
  4. PEG-INTERFERON ALFA 2A (RO 25-8310) [Suspect]
     Route: 058
     Dates: start: 20090904
  5. RIBAVIRIN [Suspect]
     Indication: CHRONIC HEPATITIS
     Dosage: IN MORNING 200 MG AND IN EVENING 400 MG
     Route: 048
     Dates: start: 20090605

REACTIONS (1)
  - ABORTION MISSED [None]
